FAERS Safety Report 6637045-7 (Version None)
Quarter: 2010Q1

REPORT INFORMATION
  Report Type: 
  Country: None (occurrence: None)
  Receive Date: 20100301
  Receipt Date: 20090223
  Transmission Date: 20100710
  Serious: Yes (Hospitalization, Other)
  Sender: FDA-Public Use
  Company Number: RB-10227-2009

PATIENT
  Age: 1 Day
  Sex: Female

DRUGS (2)
  1. SUBOXONE [Suspect]
     Indication: DRUG USE FOR UNKNOWN INDICATION
     Dosage: 8 MG TRANSPLACENTAL
     Route: 064
     Dates: start: 20080501, end: 20080602
  2. SUBUTEX [Suspect]
     Indication: DRUG USE FOR UNKNOWN INDICATION
     Dosage: 8 MG TRANSPLACENTAL
     Route: 064
     Dates: start: 20080603, end: 20090207

REACTIONS (2)
  - DRUG EXPOSURE DURING PREGNANCY [None]
  - DRUG WITHDRAWAL SYNDROME NEONATAL [None]
